FAERS Safety Report 5895025-3 (Version None)
Quarter: 2008Q3

REPORT INFORMATION
  Report Type: 
  Country: None (occurrence: None)
  Receive Date: 20080922
  Receipt Date: 20080910
  Transmission Date: 20090109
  Serious: Yes (Hospitalization)
  Sender: FDA-Public Use
  Company Number: 230270J08BRA

PATIENT
  Sex: Male

DRUGS (1)
  1. REBIF [Suspect]
     Dosage: 44 MCG, 3 IN 1 WEEKS,

REACTIONS (3)
  - CARDIAC DISORDER [None]
  - MULTIPLE SCLEROSIS RELAPSE [None]
  - RESPIRATORY DISORDER [None]
